FAERS Safety Report 7989064-6 (Version None)
Quarter: 2011Q4

REPORT INFORMATION
  Report Type: 
  Country: None (occurrence: None)
  Receive Date: 20111219
  Receipt Date: 20111207
  Transmission Date: 20120403
  Serious: Yes (Other)
  Sender: FDA-Public Use
  Company Number: US-BAYER-2011-032051

PATIENT
  Age: 52 Year
  Sex: Female
  Weight: 58.957 kg

DRUGS (4)
  1. YAZ [Suspect]
     Indication: PRODUCT USED FOR UNKNOWN INDICATION
     Dosage: UNK
     Dates: start: 20080430, end: 20090601
  2. ZOLPIDEM [Concomitant]
     Indication: SLEEP DISORDER
  3. HYDROXYZINE HCL [Concomitant]
     Dosage: UNK
     Dates: start: 20090429
  4. PAROXETINE HCL [Concomitant]
     Indication: ANXIETY

REACTIONS (11)
  - EMOTIONAL DISORDER [None]
  - HYPOAESTHESIA [None]
  - FATIGUE [None]
  - PAIN [None]
  - READING DISORDER [None]
  - CEREBROVASCULAR ACCIDENT [None]
  - DISTURBANCE IN ATTENTION [None]
  - ANXIETY [None]
  - DEPRESSION [None]
  - DISABILITY [None]
  - SPEECH DISORDER [None]
